FAERS Safety Report 7956644-3 (Version None)
Quarter: 2011Q4

REPORT INFORMATION
  Report Type: 
  Country: None (occurrence: None)
  Receive Date: 20111205
  Receipt Date: 20111125
  Transmission Date: 20120403
  Serious: Yes (Hospitalization)
  Sender: FDA-Public Use
  Company Number: US-BAYER-2011-054820

PATIENT
  Age: 22 Year
  Sex: Female
  Weight: 72.562 kg

DRUGS (19)
  1. YAZ [Suspect]
     Indication: CONTRACEPTION
     Dosage: UNK
     Dates: start: 20090201, end: 20090601
  2. OMEPRAZOLE [Concomitant]
  3. SUCRALFATE [Concomitant]
  4. PRILOSEC [Concomitant]
  5. YASMIN [Suspect]
     Indication: CONTRACEPTION
     Dosage: UNK
     Route: 048
     Dates: start: 20090201, end: 20090601
  6. IBUPROFEN (ADVIL) [Concomitant]
     Dosage: UNK UNK, PRN
     Dates: start: 20010101
  7. UNCODEABLE ^UNCLASSIFIABLE^ [Concomitant]
     Indication: ANALGESIC THERAPY
  8. PREVACID [Concomitant]
  9. ALPRAZOLAM [Concomitant]
  10. ACIPHEX [Concomitant]
     Dosage: 20 MG, UNK
  11. YAZ [Suspect]
     Indication: MENSTRUATION IRREGULAR
  12. ODANSETRON [Concomitant]
  13. YASMIN [Suspect]
     Indication: MENSTRUATION IRREGULAR
  14. AMOXICILLIN [Concomitant]
  15. PHRENILIN [Concomitant]
     Dosage: UNK
     Dates: start: 20091119
  16. EXCEDRIN (MIGRAINE) [Concomitant]
  17. TUMS E-X [Concomitant]
     Indication: DYSPEPSIA
     Dosage: 500 MG, PRN
  18. MIDRIN [Concomitant]
     Dosage: 100 MG, PRN
     Dates: start: 20091119
  19. HYDROCODONE [Concomitant]

REACTIONS (8)
  - PAIN [None]
  - VOMITING [None]
  - DIARRHOEA [None]
  - CHOLECYSTITIS CHRONIC [None]
  - NAUSEA [None]
  - DYSPEPSIA [None]
  - BILE OUTPUT [None]
  - ANHEDONIA [None]
